FAERS Safety Report 25990841 (Version 1)
Quarter: 2025Q4

REPORT INFORMATION
  Report Type: Spontaneous
  Country: JP (occurrence: JP)
  Receive Date: 20251103
  Receipt Date: 20251103
  Transmission Date: 20260118
  Serious: Yes (Hospitalization, Other)
  Sender: AMGEN
  Company Number: JP-AMGEN-JPNSP2025213887

PATIENT
  Sex: Male

DRUGS (3)
  1. IMDELLTRA [Suspect]
     Active Substance: TARLATAMAB-DLLE
     Indication: Small cell lung cancer recurrent
     Dosage: UNK, INJECTION, CYCLE 1 DAY 1
     Route: 040
  2. IMDELLTRA [Suspect]
     Active Substance: TARLATAMAB-DLLE
     Dosage: 10 MILLIGRAM, CYCLE 1 DAY 8 (SECOND DOSE)
     Route: 040
  3. IMDELLTRA [Suspect]
     Active Substance: TARLATAMAB-DLLE
     Dosage: 10 MILLIGRAM, CYCLE 1 DAY 15 (THIRD DOSE)
     Route: 040

REACTIONS (2)
  - Interstitial lung disease [Not Recovered/Not Resolved]
  - Cytokine release syndrome [Recovered/Resolved]
